FAERS Safety Report 20951414 (Version 1)
Quarter: 2022Q2

REPORT INFORMATION
  Report Type: Spontaneous
  Country: US (occurrence: None)
  Receive Date: 20220610
  Receipt Date: 20220610
  Transmission Date: 20220721
  Serious: Yes (Life-Threatening, Disabling)
  Sender: FDA-Public Use
  Company Number: None

PATIENT
  Age: 44 Year
  Sex: Female
  Weight: 56.25 kg

DRUGS (2)
  1. TALTZ [Suspect]
     Active Substance: IXEKIZUMAB
     Indication: Psoriatic arthropathy
     Dosage: OTHER FREQUENCY : EVERY 2 WEEKS;?
     Route: 058
     Dates: start: 20180901
  2. Meloxicam 7.5mg prn [Concomitant]

REACTIONS (5)
  - Periodontal disease [None]
  - Gingivitis [None]
  - Tooth loss [None]
  - Tooth infection [None]
  - Abscess neck [None]

NARRATIVE: CASE EVENT DATE: 20220406
